FAERS Safety Report 24285946 (Version 1)
Quarter: 2024Q3

REPORT INFORMATION
  Report Type: Spontaneous
  Country: GB (occurrence: GB)
  Receive Date: 20240905
  Receipt Date: 20240905
  Transmission Date: 20241017
  Serious: Yes (Other)
  Sender: PFIZER
  Company Number: None

PATIENT
  Age: 54 Year

DRUGS (15)
  1. DALTEPARIN SODIUM [Suspect]
     Active Substance: DALTEPARIN SODIUM
     Dosage: 18,000 UNITS IN 0.72ML ONCE DAILY AS DIRECTED AT TEATIME
     Route: 058
  2. CEPHALEXIN [Concomitant]
     Active Substance: CEPHALEXIN
     Indication: Infection
     Dosage: FREQ:8 H;FINISHED COURSE21 CAPSULE
  3. FLUCLOXACILLIN [Concomitant]
     Active Substance: FLUCLOXACILLIN
     Indication: Haematoma infection
     Dosage: FREQ:6 H (ONE TO BE TAKEN FOUR TIMES A DAY)
  4. CYCLIZINE [Concomitant]
     Active Substance: CYCLIZINE
     Dosage: 50 MG TABLETS ONE TO BE TAKEN UP TO THREE TIMES A DAY AS NECESSARY
  5. OMEPRAZOLE [Concomitant]
     Active Substance: OMEPRAZOLE
     Dosage: 20 MG, 1X/DAY
  6. MEBEVERINE [Concomitant]
     Active Substance: MEBEVERINE
     Dosage: FREQ:8 H;TWENTY MINUTES BEFORE FOOD
  7. ACETAMINOPHEN [Concomitant]
     Active Substance: ACETAMINOPHEN
     Dosage: TWO TO BE TAKEN EVERY 4-6 HOURS UP TO FOUR TIMES A DAY
  8. ALBUTEROL [Concomitant]
     Active Substance: ALBUTEROL
     Dosage: 100 MCG/DOSE; INHALE 2 DOSES AS NEEDED
     Route: 055
  9. NITROFURANTOIN [Concomitant]
     Active Substance: NITROFURANTOIN
     Indication: Infection
     Dosage: FREQ:12 H;14 CAPSULEFINISHED COURSE
  10. THIAMINE [Concomitant]
     Active Substance: THIAMINE
     Dosage: 100 MGFREQ:12 H
  11. AMITRIPTYLINE [Concomitant]
     Active Substance: AMITRIPTYLINE
     Dosage: 25 MG, 1X/DAYAT NIGHT
  12. GLICLAZIDE [Concomitant]
     Active Substance: GLICLAZIDE
     Dosage: 80 MG TABLETS ONE TWICE A DAY WITH MEALS
  13. GLICLAZIDE [Concomitant]
     Active Substance: GLICLAZIDE
     Dosage: 40 MG FREQ:12 H;WITH MEALS
  14. OXYCODONE [Concomitant]
     Active Substance: OXYCODONE
     Indication: Pain
     Dosage: 20 ML (5MG/5ML)  FREQ:6 H
     Route: 048
  15. DULOXETINE [Concomitant]
     Active Substance: DULOXETINE
     Dosage: 30 MG, 1X/DAY

REACTIONS (1)
  - Haematoma [Unknown]
